FAERS Safety Report 5089598-0 (Version None)
Quarter: 2006Q3

REPORT INFORMATION
  Report Type: 
  Country: None (occurrence: None)
  Receive Date: 20060822
  Receipt Date: 20060731
  Transmission Date: 20061208
  Serious: Yes (Hospitalization)
  Sender: FDA-Public Use
  Company Number: US200606000528

PATIENT
  Sex: Female
  Weight: 72.1 kg

DRUGS (1)
  1. ZYPREXA [Suspect]
     Indication: DRUG USE FOR UNKNOWN INDICATION

REACTIONS (3)
  - CARDIAC DISORDER [None]
  - HYPOGLYCAEMIA [None]
  - VISION BLURRED [None]
